FAERS Safety Report 8459601-6 (Version None)
Quarter: 2012Q2

REPORT INFORMATION
  Report Type: 
  Country: None (occurrence: None)
  Receive Date: 20120622
  Receipt Date: 20120614
  Transmission Date: 20120825
  Serious: Yes (Death)
  Sender: FDA-Public Use
  Company Number: US-GLAXOSMITHKLINE-A0959375A

PATIENT
  Age: 61 Year
  Sex: Female

DRUGS (9)
  1. GLYBURIDE [Concomitant]
  2. HYCAMTIN [Suspect]
     Indication: LUNG NEOPLASM MALIGNANT
     Dosage: 4MG CYCLIC
     Route: 048
     Dates: start: 20120320, end: 20120508
  3. KEPPRA [Concomitant]
  4. COUMADIN [Concomitant]
  5. NORVASC [Concomitant]
  6. DEXAMETHASONE [Concomitant]
  7. PROTONIX [Concomitant]
  8. LISINOPRIL [Concomitant]
  9. ACETAMINOPHEN [Concomitant]

REACTIONS (3)
  - WEIGHT DECREASED [None]
  - SMALL CELL LUNG CANCER STAGE UNSPECIFIED [None]
  - VOMITING [None]
